FAERS Safety Report 11406210 (Version 1)
Quarter: 2015Q3

REPORT INFORMATION
  Report Type: Spontaneous
  Country: US (occurrence: US)
  Receive Date: 20150821
  Receipt Date: 20150821
  Transmission Date: 20151125
  Serious: No
  Sender: FDA-Public Use
  Company Number: US-TARO-2014TAR00303

PATIENT
  Sex: Female

DRUGS (7)
  1. TERBINAFINE TABLETS [Suspect]
     Active Substance: TERBINAFINE
     Indication: BODY TINEA
     Dosage: 250 MG, 1X/DAY
     Route: 048
     Dates: start: 20140707
  2. KETOCONAZOLE SHAMPOO 2% [Suspect]
     Active Substance: KETOCONAZOLE
     Indication: BODY TINEA
     Route: 061
  3. LAMISIL [Suspect]
     Active Substance: TERBINAFINE HYDROCHLORIDE
     Indication: BODY TINEA
     Dosage: UNK, 2X/DAY
     Route: 061
     Dates: start: 201407, end: 201408
  4. LAMISIL [Suspect]
     Active Substance: TERBINAFINE HYDROCHLORIDE
     Indication: BODY TINEA
     Dosage: UNK, 1X/DAY
     Route: 061
     Dates: start: 201407, end: 201408
  5. CLOROX [Suspect]
     Active Substance: SODIUM HYPOCHLORITE
     Indication: BODY TINEA
     Dosage: UNK
     Route: 061
     Dates: start: 201407
  6. LAMISL AF DEFENSE [Suspect]
     Active Substance: TOLNAFTATE
     Indication: BODY TINEA
     Dosage: UNK, 2X/DAY
     Route: 061
     Dates: start: 201407
  7. UNSPECIFIED CREAM [Suspect]
     Active Substance: UNSPECIFIED INGREDIENT
     Indication: BODY TINEA

REACTIONS (3)
  - Formication [Unknown]
  - Drug ineffective [Unknown]
  - Incorrect drug administration duration [Unknown]
